FAERS Safety Report 5146648-0 (Version None)
Quarter: 2006Q4

REPORT INFORMATION
  Report Type: 
  Country: None (occurrence: None)
  Receive Date: 20061109
  Receipt Date: 20061101
  Transmission Date: 20070319
  Serious: Yes (Other)
  Sender: FDA-Public Use
  Company Number: US-AVENTIS-200618996US

PATIENT
  Sex: Male

DRUGS (3)
  1. LOVENOX [Suspect]
     Dosage: DOSE: 130 MG FOR 10 DAYS
     Dates: start: 20061019
  2. PREDNISONE TAB [Concomitant]
     Dosage: DOSE: UNK
  3. FOLIC ACID [Concomitant]
     Dosage: DOSE: UNK

REACTIONS (2)
  - ANAEMIA [None]
  - HAEMOGLOBIN DECREASED [None]
